FAERS Safety Report 7153000-5 (Version None)
Quarter: 2010Q4

REPORT INFORMATION
  Report Type: 
  Country: None (occurrence: None)
  Receive Date: 20101213
  Receipt Date: 20101130
  Transmission Date: 20110411
  Serious: Yes (Hospitalization, Other)
  Sender: FDA-Public Use
  Company Number: US-ELI_LILLY_AND_COMPANY-US201009003675

PATIENT
  Sex: Female
  Weight: 58.503 kg

DRUGS (6)
  1. FORTEO [Suspect]
     Indication: OSTEOPOROSIS
     Dosage: 20 UG, DAILY (1/D)
     Route: 065
     Dates: start: 20090915, end: 20100831
  2. FORTEO [Suspect]
     Dosage: 20 UG, DAILY (1/D)
     Route: 065
  3. LIPITOR [Concomitant]
  4. SYNTHROID [Concomitant]
  5. ADVAIR DISKUS 100/50 [Concomitant]
  6. PRILOSEC [Concomitant]

REACTIONS (5)
  - ABDOMINAL WALL NEOPLASM [None]
  - ADENOCARCINOMA PANCREAS [None]
  - CHOLELITHIASIS [None]
  - NAUSEA [None]
  - VOMITING [None]
